FAERS Safety Report 5535108-0 (Version None)
Quarter: 2007Q4

REPORT INFORMATION
  Report Type: 
  Country: None (occurrence: None)
  Receive Date: 20071203
  Receipt Date: 20071121
  Transmission Date: 20080405
  Serious: Yes (Death, Hospitalization)
  Sender: FDA-Public Use
  Company Number: GXKR2007ES10025

PATIENT
  Age: 78 Year
  Sex: Male

DRUGS (5)
  1. DEFLAZCORTE (NGX) (DEFLZACORTE) UNKNOWN [Suspect]
     Indication: CHRONIC OBSTRUCTIVE PULMONARY DISEASE
     Dosage: 30 MG, QD,
  2. METHYLPREDNISOLONE [Suspect]
     Indication: CHRONIC OBSTRUCTIVE PULMONARY DISEASE
     Dosage: 40 MG, TID, INTRAVENOUS
     Route: 042
  3. LEVOFLOXACIN [Concomitant]
  4. AMOXICILLIN W/CLAVULANIC ACID (AMOXICILLIN, CLAVULANIC ACID) [Concomitant]
  5. CEFTRIAXONE [Concomitant]

REACTIONS (3)
  - BRONCHOPULMONARY ASPERGILLOSIS [None]
  - PNEUMONIA [None]
  - PULMONARY CAVITATION [None]
